FAERS Safety Report 8036227-X (Version None)
Quarter: 2012Q1

REPORT INFORMATION
  Report Type: 
  Country: None (occurrence: None)
  Receive Date: 20120111
  Receipt Date: 20120104
  Transmission Date: 20120608
  Serious: Yes (Hospitalization, Other)
  Sender: FDA-Public Use
  Company Number: PHHY2011BR113448

PATIENT
  Sex: Female
  Weight: 70 kg

DRUGS (8)
  1. MOTILIUM [Concomitant]
     Indication: GASTROINTESTINAL DISORDER
     Dosage: 2 DF, A DAY
     Route: 048
     Dates: start: 20111205
  2. AFINITOR [Suspect]
     Indication: BREAST CANCER METASTATIC
     Dosage: 10 MG, UNK
     Route: 048
     Dates: start: 20111128
  3. OLCADIL [Concomitant]
     Indication: ANXIOLYTIC THERAPY
     Dosage: 1 DF (2 MG), A DAY
     Route: 048
  4. AFINITOR [Suspect]
     Dosage: 5 MG, UNK
     Route: 048
     Dates: start: 20111209
  5. AROMASIN [Suspect]
     Indication: BREAST CANCER
     Dates: start: 20111128
  6. OMEPRAZOLE [Concomitant]
     Indication: GASTROINTESTINAL DISORDER
  7. LEXAPRO [Concomitant]
     Indication: ANTIDEPRESSANT THERAPY
     Dosage: 1 DF(10 MG), A DAY
     Route: 048
  8. CAPTOPRIL [Concomitant]
     Indication: HYPERTENSION
     Dosage: 1 DF, A DAY
     Route: 048

REACTIONS (6)
  - DRY SKIN [None]
  - BACK PAIN [None]
  - ABDOMINAL PAIN [None]
  - VISION BLURRED [None]
  - PANCREATITIS [None]
  - DIARRHOEA [None]
